FAERS Safety Report 10084234 (Version 3)
Quarter: 2014Q2

REPORT INFORMATION
  Report Type: Spontaneous
  Country: US (occurrence: None)
  Receive Date: 20140415
  Receipt Date: 20140611
  Transmission Date: 20141212
  Serious: Yes (Disabling, Other)
  Sender: FDA-Public Use
  Company Number: 2014-US-004195

PATIENT
  Age: 35 Year
  Sex: Male
  Weight: 80.3 kg

DRUGS (5)
  1. XYREM [Suspect]
     Indication: NARCOLEPSY
     Route: 048
     Dates: start: 201302
  2. XYREM [Suspect]
     Indication: CATAPLEXY
     Route: 048
     Dates: start: 201302
  3. ADDERALL (AMFETAMINE ASPARTATE, AMFETAMINE SULFATE, DEXAMFETAMINE SACCHARATE, DEXAMFETAMINE SULFATE) [Concomitant]
  4. PROVIGIL (MODAFINIL) [Concomitant]
  5. BUPROPION [Concomitant]

REACTIONS (7)
  - Insomnia [None]
  - Drug tolerance [None]
  - Depression [None]
  - Dizziness [None]
  - Balance disorder [None]
  - Impaired work ability [None]
  - Drug ineffective [None]
